FAERS Safety Report 8693292 (Version 2)
Quarter: 2012Q4

REPORT INFORMATION
  Report Type: 
  Country: US (occurrence: US)
  Receive Date: 20120730
  Receipt Date: 20120905
  Transmission Date: 20130627
  Serious: Yes (Other)
  Sender: FDA-Public Use
  Company Number: US-PFIZER INC-2012180787

PATIENT
  Age: 83 Year
  Sex: Female
  Weight: 72.56 kg

DRUGS (3)
  1. LYRICA [Suspect]
     Indication: NEURALGIA
     Dosage: 100 mg, 2x/day
     Dates: end: 20120724
  2. DILTIAZEM [Concomitant]
     Indication: CARDIAC DISORDER
     Dosage: 150 mg, 2x/day
  3. AVAPRO [Concomitant]
     Indication: HYPERTENSION
     Dosage: 175 mg, 1x/day

REACTIONS (5)
  - Arthropathy [Not Recovered/Not Resolved]
  - Arthralgia [Not Recovered/Not Resolved]
  - Headache [Recovered/Resolved]
  - Neuralgia [Not Recovered/Not Resolved]
  - Nervousness [Not Recovered/Not Resolved]
